FAERS Safety Report 6853315-1 (Version None)
Quarter: 2010Q3

REPORT INFORMATION
  Report Type: 
  Country: None (occurrence: None)
  Receive Date: 20100717
  Receipt Date: 20071205
  Transmission Date: 20110219
  Serious: No
  Sender: FDA-Public Use
  Company Number: US-PFIZER INC-2007104697

PATIENT
  Sex: Female
  Weight: 83.9 kg

DRUGS (2)
  1. CHANTIX [Suspect]
     Indication: SMOKING CESSATION THERAPY
     Dates: start: 20071125
  2. ALLEGRA [Concomitant]

REACTIONS (4)
  - BALANCE DISORDER [None]
  - FLUSHING [None]
  - HEADACHE [None]
  - TREMOR [None]
